FAERS Safety Report 9112457 (Version 1)
Quarter: 2013Q1

REPORT INFORMATION
  Report Type: Spontaneous
  Country: US (occurrence: US)
  Receive Date: 20130211
  Receipt Date: 20130211
  Transmission Date: 20140127
  Serious: Yes (Hospitalization)
  Sender: FDA-Public Use
  Company Number: US-GILEAD-2012-0063078

PATIENT
  Sex: Female

DRUGS (1)
  1. LETAIRIS [Suspect]
     Indication: PORTAL HYPERTENSION
     Dosage: 5 MG, UNK
     Route: 048
     Dates: start: 20121010

REACTIONS (1)
  - Dehydration [Unknown]
